FAERS Safety Report 4290249-3 (Version None)
Quarter: 2004Q1

REPORT INFORMATION
  Report Type: 
  Country: None (occurrence: None)
  Receive Date: 20040210
  Receipt Date: 20040205
  Transmission Date: 20041129
  Serious: Yes (Other)
  Sender: FDA-Public Use
  Company Number: BR-BRISTOL-MYERS SQUIBB COMPANY-12498176

PATIENT
  Age: 58 Year
  Sex: Female

DRUGS (4)
  1. TEQUIN [Suspect]
     Indication: URINARY TRACT INFECTION
     Dosage: SINGLE DOSE
     Route: 048
     Dates: start: 20040101, end: 20040101
  2. RIVOTRIL [Concomitant]
  3. CLOXAZOLAM [Concomitant]
  4. ANTIDEPRESSANT [Concomitant]

REACTIONS (4)
  - DYSPNOEA [None]
  - MALAISE [None]
  - PALLOR [None]
  - PHARYNGEAL OEDEMA [None]
